FAERS Safety Report 24934777 (Version 1)
Quarter: 2025Q1

REPORT INFORMATION
  Report Type: Spontaneous
  Country: US (occurrence: US)
  Receive Date: 20250206
  Receipt Date: 20250206
  Transmission Date: 20250409
  Serious: Yes (Other)
  Sender: SANOFI AVENTIS
  Company Number: US-SA-2025SA034830

PATIENT
  Age: 12 Year
  Sex: Male
  Weight: 65.91 kg

DRUGS (4)
  1. DUPIXENT [Suspect]
     Active Substance: DUPILUMAB
     Indication: Dermatitis atopic
     Dosage: 300 MG, QOW
     Route: 058
  2. DUPIXENT [Suspect]
     Active Substance: DUPILUMAB
     Indication: Eosinophilic oesophagitis
  3. VITAMIN D2 [Concomitant]
     Active Substance: ERGOCALCIFEROL
  4. FLONASE ALLERGY RELIEF [Concomitant]
     Active Substance: FLUTICASONE PROPIONATE
     Dates: end: 20241207

REACTIONS (14)
  - Unresponsive to stimuli [Unknown]
  - Vomiting [Unknown]
  - Arthritis [Unknown]
  - Sunburn [Unknown]
  - Skin fissures [Unknown]
  - Skin exfoliation [Unknown]
  - Pain in extremity [Unknown]
  - Dizziness [Unknown]
  - Urticaria [Unknown]
  - Headache [Unknown]
  - Skin warm [Unknown]
  - Therapeutic response shortened [Unknown]
  - Eosinophilia [Unknown]
  - Condition aggravated [Unknown]

NARRATIVE: CASE EVENT DATE: 20250101
